FAERS Safety Report 8401884-2 (Version None)
Quarter: 2012Q2

REPORT INFORMATION
  Report Type: 
  Country: None (occurrence: None)
  Receive Date: 20120601
  Receipt Date: 20110617
  Transmission Date: 20120825
  Serious: No
  Sender: FDA-Public Use
  Company Number: US-ABBOTT-11P-163-0733246-00

PATIENT
  Sex: Male
  Weight: 113.5 kg

DRUGS (2)
  1. MARINOL [Suspect]
     Indication: NYSTAGMUS
     Route: 048
     Dates: end: 20110603
  2. MARINOL [Suspect]
     Indication: VERTIGO

REACTIONS (2)
  - VISION BLURRED [None]
  - VERTIGO [None]
